FAERS Safety Report 6163064-3 (Version None)
Quarter: 2009Q2

REPORT INFORMATION
  Report Type: 
  Country: None (occurrence: None)
  Receive Date: 20090422
  Receipt Date: 20090413
  Transmission Date: 20091009
  Serious: Yes (Disabling)
  Sender: FDA-Public Use
  Company Number: US-CELGENEUS-163-21880-09011492

PATIENT
  Sex: Female

DRUGS (15)
  1. REVLIMID [Suspect]
     Indication: MULTIPLE MYELOMA
     Route: 048
     Dates: start: 20090112
  2. REVLIMID [Suspect]
     Route: 048
     Dates: start: 20081125, end: 20090104
  3. VELCADE [Suspect]
     Indication: MULTIPLE MYELOMA
     Route: 065
     Dates: start: 20081125
  4. DEXAMETHASONE 4MG TAB [Suspect]
     Indication: MULTIPLE MYELOMA
     Route: 065
     Dates: start: 20081125
  5. ACETAMINOPHEN [Concomitant]
     Indication: PAIN
     Route: 065
     Dates: start: 20081121
  6. ACETAMINOPHEN [Concomitant]
  7. ASPIRIN [Concomitant]
     Indication: DRUG USE FOR UNKNOWN INDICATION
     Route: 065
     Dates: start: 20081121
  8. ZOFRAN [Concomitant]
     Indication: NAUSEA
     Route: 065
     Dates: start: 20081121
  9. ZOFRAN [Concomitant]
     Indication: VOMITING
  10. ZOVIRAX [Concomitant]
     Indication: PROPHYLAXIS
     Route: 065
     Dates: start: 20081122
  11. BACTRIM [Concomitant]
     Indication: PROPHYLAXIS
     Dosage: 400/80 MG
     Route: 048
     Dates: start: 20081122
  12. PREVICID [Concomitant]
     Route: 065
     Dates: start: 20081123
  13. MYCELEX [Concomitant]
     Indication: PROPHYLAXIS
     Route: 065
     Dates: start: 20081122
  14. SENNA [Concomitant]
     Indication: CONSTIPATION
     Route: 065
     Dates: start: 20090305
  15. EMEND [Concomitant]
     Indication: DRUG USE FOR UNKNOWN INDICATION
     Route: 065
     Dates: start: 20081113

REACTIONS (2)
  - BONE PAIN [None]
  - MYALGIA [None]
